FAERS Safety Report 23915662 (Version 1)
Quarter: 2024Q2

REPORT INFORMATION
  Report Type: Spontaneous
  Country: US (occurrence: None)
  Receive Date: 20240529
  Receipt Date: 20240529
  Transmission Date: 20240715
  Serious: No
  Sender: FDA-Public Use
  Company Number: None

PATIENT
  Sex: Female

DRUGS (2)
  1. GADAVIST [Suspect]
     Active Substance: GADOBUTROL
  2. EOVIST [Suspect]
     Active Substance: GADOXETATE DISODIUM

REACTIONS (6)
  - Cardiac arrest [None]
  - Wrong product administered [None]
  - Product packaging confusion [None]
  - Product appearance confusion [None]
  - Product label confusion [None]
  - Contrast media reaction [None]

NARRATIVE: CASE EVENT DATE: 20240205
